FAERS Safety Report 23618399 (Version 3)
Quarter: 2024Q3

REPORT INFORMATION
  Report Type: Spontaneous
  Country: BE (occurrence: BE)
  Receive Date: 20240311
  Receipt Date: 20240729
  Transmission Date: 20241017
  Serious: Yes (Hospitalization)
  Sender: SANDOZ
  Company Number: BE-ROCHE-3507689

PATIENT
  Age: 74 Year
  Sex: Male
  Weight: 85 kg

DRUGS (71)
  1. CYCLOPHOSPHAMIDE [Suspect]
     Active Substance: CYCLOPHOSPHAMIDE
     Indication: Diffuse large B-cell lymphoma
     Dosage: ON 30/JAN/2024 HE RECEIVED MOST RECENT DOSE OF STUDY DRUG (1530 MG) PRIOR TO AE/SAE.
     Route: 042
     Dates: start: 20231219
  2. DOXORUBICIN [Suspect]
     Active Substance: DOXORUBICIN
     Indication: Diffuse large B-cell lymphoma
     Dosage: ON 30/JAN/2024 HE RECEIVED MOST RECENT DOSE OF STUDY DRUG (102 MG) PRIOR TO AE/SAE.
     Route: 042
     Dates: start: 20231219
  3. GLOFITAMAB [Suspect]
     Active Substance: GLOFITAMAB
     Indication: Diffuse large B-cell lymphoma
     Dosage: ON 06/FEB/2024 HE RECEIVED MOST RECENT DOSE OF STUDY DRUG (30 MG) PRIOR TO AE/SAE.
     Route: 042
     Dates: start: 20240116
  4. POLATUZUMAB VEDOTIN [Suspect]
     Active Substance: POLATUZUMAB VEDOTIN
     Indication: Diffuse large B-cell lymphoma
     Dosage: ON 30/JAN/2024 HE RECEIVED MOST RECENT DOSE OF STUDY DRUG (153 MG) PRIOR TO AE/SAE.
     Route: 042
     Dates: start: 20231220
  5. RITUXIMAB [Suspect]
     Active Substance: RITUXIMAB
     Indication: Diffuse large B-cell lymphoma
     Dosage: ON 30/JAN/2024 HE RECEIVED MOST RECENT DOSE OF STUDY DRUG (765 MG) PRIOR TO AE/SAE.
     Route: 042
     Dates: start: 20231219
  6. ACYCLOVIR [Concomitant]
     Active Substance: ACYCLOVIR
     Indication: Product used for unknown indication
     Dosage: 400.000MG
     Route: 065
     Dates: start: 20231211
  7. ACYCLOVIR [Concomitant]
     Active Substance: ACYCLOVIR
     Dosage: 400.000MG
     Route: 065
     Dates: start: 20231211
  8. AKYNZEO [Concomitant]
     Indication: Product used for unknown indication
     Dosage: UNK
     Route: 065
  9. BACTRIM [Concomitant]
     Active Substance: SULFAMETHOXAZOLE\TRIMETHOPRIM
     Dosage: 1 U
     Route: 048
     Dates: start: 20231211
  10. BACTRIM [Concomitant]
     Active Substance: SULFAMETHOXAZOLE\TRIMETHOPRIM
     Indication: Product used for unknown indication
     Dosage: 1 U
     Route: 065
     Dates: start: 20231211
  11. BACTRIM [Concomitant]
     Active Substance: SULFAMETHOXAZOLE\TRIMETHOPRIM
     Dosage: 1 U
     Route: 065
     Dates: start: 20231211
  12. BACTRIM [Concomitant]
     Active Substance: SULFAMETHOXAZOLE\TRIMETHOPRIM
     Dosage: 1 U
     Route: 065
     Dates: start: 20231211
  13. BACTRIM [Concomitant]
     Active Substance: SULFAMETHOXAZOLE\TRIMETHOPRIM
     Dosage: 1 U
     Route: 065
     Dates: start: 20231211
  14. BACTRIM [Concomitant]
     Active Substance: SULFAMETHOXAZOLE\TRIMETHOPRIM
     Dosage: 1 U
     Route: 065
     Dates: start: 20231211
  15. BACTRIM [Concomitant]
     Active Substance: SULFAMETHOXAZOLE\TRIMETHOPRIM
     Dosage: 1 U
     Route: 065
     Dates: start: 20231211
  16. BACTRIM [Concomitant]
     Active Substance: SULFAMETHOXAZOLE\TRIMETHOPRIM
     Dosage: 1 U
     Route: 065
     Dates: start: 20231211
  17. BACTRIM [Concomitant]
     Active Substance: SULFAMETHOXAZOLE\TRIMETHOPRIM
     Dosage: 1 U
     Route: 065
     Dates: start: 20231211
  18. BACTRIM [Concomitant]
     Active Substance: SULFAMETHOXAZOLE\TRIMETHOPRIM
     Dosage: 1 U
     Route: 065
     Dates: start: 20231211
  19. BACTRIM [Concomitant]
     Active Substance: SULFAMETHOXAZOLE\TRIMETHOPRIM
     Dosage: 1 U
     Route: 065
     Dates: start: 20231211
  20. BACTRIM [Concomitant]
     Active Substance: SULFAMETHOXAZOLE\TRIMETHOPRIM
     Dosage: 1 U
     Route: 065
     Dates: start: 20231211
  21. CALCIUM CARBONATE [Concomitant]
     Active Substance: CALCIUM CARBONATE
     Indication: Product used for unknown indication
     Dosage: UNK
     Route: 065
  22. ENOXAPARIN SODIUM [Concomitant]
     Active Substance: ENOXAPARIN SODIUM
     Dosage: 40.000MG QD
     Route: 058
     Dates: start: 20231213, end: 20240109
  23. ENOXAPARIN SODIUM [Concomitant]
     Active Substance: ENOXAPARIN SODIUM
     Indication: Product used for unknown indication
     Dosage: 40.000MG QD
     Route: 065
     Dates: start: 20231213
  24. DAFALGAN [Concomitant]
     Active Substance: ACETAMINOPHEN
     Dosage: 1.000G
     Route: 048
     Dates: start: 20231213, end: 20240313
  25. DAFALGAN [Concomitant]
     Active Substance: ACETAMINOPHEN
     Indication: Pain
     Dosage: 1000.000MG QD
     Route: 065
     Dates: start: 20240206, end: 20240206
  26. DAFALGAN [Concomitant]
     Active Substance: ACETAMINOPHEN
     Indication: Product used for unknown indication
     Dosage: 1000.000MG QD
     Route: 065
     Dates: start: 20240130, end: 20240130
  27. DAFALGAN [Concomitant]
     Active Substance: ACETAMINOPHEN
     Dosage: 1000.000MG QD
     Route: 065
     Dates: start: 20240109, end: 20240109
  28. DAFALGAN [Concomitant]
     Active Substance: ACETAMINOPHEN
     Dosage: 1000.000MG QD
     Route: 065
     Dates: start: 20240116, end: 20240116
  29. DEXAMETHASONE [Concomitant]
     Active Substance: DEXAMETHASONE
     Dosage: 20.000MG QD
     Route: 042
     Dates: start: 20240116, end: 20240116
  30. DEXAMETHASONE [Concomitant]
     Active Substance: DEXAMETHASONE
     Dosage: 20.000MG QD
     Route: 042
     Dates: start: 20240116, end: 20240116
  31. DEXAMETHASONE [Concomitant]
     Active Substance: DEXAMETHASONE
     Dosage: 20.000MG QD
     Route: 042
     Dates: start: 20240123, end: 20240123
  32. DEXAMETHASONE [Concomitant]
     Active Substance: DEXAMETHASONE
     Dosage: 20.000MG QD
     Route: 042
     Dates: start: 20240123, end: 20240123
  33. DEXAMETHASONE [Concomitant]
     Active Substance: DEXAMETHASONE
     Dosage: 20.000MG QD
     Route: 042
     Dates: start: 20240206, end: 20240206
  34. DEXAMETHASONE [Concomitant]
     Active Substance: DEXAMETHASONE
     Dosage: 20.000MG QD
     Route: 042
     Dates: start: 20240206, end: 20240206
  35. DEXAMETHASONE [Concomitant]
     Active Substance: DEXAMETHASONE
     Indication: Product used for unknown indication
     Dosage: 20.000MG QD
     Route: 065
     Dates: start: 20240116, end: 20240116
  36. DEXAMETHASONE [Concomitant]
     Active Substance: DEXAMETHASONE
     Dosage: 20.000MG QD
     Route: 065
     Dates: start: 20240123, end: 20240123
  37. DEXAMETHASONE [Concomitant]
     Active Substance: DEXAMETHASONE
     Dosage: 20.000MG QD
     Route: 065
     Dates: start: 20240206, end: 20240206
  38. DEXAMETHASONE [Concomitant]
     Active Substance: DEXAMETHASONE
     Dosage: 4.000MG
     Route: 048
     Dates: start: 20240124, end: 20240125
  39. DEXAMETHASONE [Concomitant]
     Active Substance: DEXAMETHASONE
     Dosage: 4.000MG
     Route: 048
     Dates: start: 20240124, end: 20240125
  40. DEXAMETHASONE [Concomitant]
     Active Substance: DEXAMETHASONE
     Dosage: 4.000MG
     Route: 065
     Dates: start: 20240124, end: 20240125
  41. FOLIC ACID [Concomitant]
     Active Substance: FOLIC ACID
     Dosage: 4.000MG QD
     Route: 048
     Dates: start: 20231208, end: 20240116
  42. FOLIC ACID [Concomitant]
     Active Substance: FOLIC ACID
     Indication: Folate deficiency
     Dosage: 4.000MG QD
     Route: 065
     Dates: start: 20231208
  43. FOLIC ACID [Concomitant]
     Active Substance: FOLIC ACID
     Dosage: 4.000MG
     Route: 048
     Dates: start: 20240116
  44. LACTULOSE [Concomitant]
     Active Substance: LACTULOSE
     Indication: Product used for unknown indication
     Dosage: UNK
     Route: 065
     Dates: start: 20240109
  45. LACTULOSE [Concomitant]
     Active Substance: LACTULOSE
     Route: 048
     Dates: start: 20240109
  46. METHYLPREDNISOLONE [Concomitant]
     Active Substance: METHYLPREDNISOLONE
     Indication: Diffuse large B-cell lymphoma
     Dosage: ON 03/FEB/2024 HE RECEIVED MOST RECENT DOSE OF STUDY DRUG (80 MG) PRIOR TO AE/SAE.
     Route: 048
     Dates: start: 20231219
  47. PANTOPRAZOLE SODIUM [Concomitant]
     Active Substance: PANTOPRAZOLE SODIUM
     Dosage: 20.000MG QD
     Route: 048
     Dates: start: 20231218
  48. PANTOPRAZOLE SODIUM [Concomitant]
     Active Substance: PANTOPRAZOLE SODIUM
     Indication: Product used for unknown indication
     Dosage: 20.000MG QD
     Route: 065
     Dates: start: 20231218
  49. ACETAMINOPHEN [Concomitant]
     Active Substance: ACETAMINOPHEN
     Indication: Product used for unknown indication
     Dosage: 5 MG
     Route: 065
     Dates: start: 20240130, end: 20240130
  50. PEGFILGRASTIM [Concomitant]
     Active Substance: PEGFILGRASTIM
     Dosage: 6.000MG QD
     Route: 058
     Dates: start: 20240112, end: 20240112
  51. PEGFILGRASTIM [Concomitant]
     Active Substance: PEGFILGRASTIM
     Dosage: 6.000MG QD
     Route: 058
     Dates: start: 20240202, end: 20240202
  52. PEGFILGRASTIM [Concomitant]
     Active Substance: PEGFILGRASTIM
     Indication: Product used for unknown indication
     Dosage: 6.000MG QD
     Route: 065
     Dates: start: 20240112, end: 20240112
  53. TRAMADOL [Concomitant]
     Active Substance: TRAMADOL\TRAMADOL HYDROCHLORIDE
     Dosage: 50.000MG
     Route: 048
     Dates: start: 20240109, end: 20240312
  54. TRAMADOL [Concomitant]
     Active Substance: TRAMADOL\TRAMADOL HYDROCHLORIDE
     Indication: Pain
     Dosage: 50.000MG
     Route: 065
     Dates: start: 20240109
  55. TRAMADOL [Concomitant]
     Active Substance: TRAMADOL\TRAMADOL HYDROCHLORIDE
     Dosage: 50.000MG
     Route: 065
     Dates: start: 20240109
  56. TRAMADOL [Concomitant]
     Active Substance: TRAMADOL\TRAMADOL HYDROCHLORIDE
     Dosage: 50.000MG
     Route: 065
     Dates: start: 20240109
  57. TRAMADOL [Concomitant]
     Active Substance: TRAMADOL\TRAMADOL HYDROCHLORIDE
     Dosage: 50.000MG
     Route: 065
     Dates: start: 20240109
  58. TRAMADOL [Concomitant]
     Active Substance: TRAMADOL\TRAMADOL HYDROCHLORIDE
     Dosage: 50.000MG
     Route: 065
     Dates: start: 20240109
  59. TRAMADOL [Concomitant]
     Active Substance: TRAMADOL\TRAMADOL HYDROCHLORIDE
     Dosage: 50.000MG
     Route: 065
     Dates: start: 20240109
  60. TRAMADOL [Concomitant]
     Active Substance: TRAMADOL\TRAMADOL HYDROCHLORIDE
     Dosage: 50.000MG
     Route: 065
     Dates: start: 20240109
  61. VIREAD [Concomitant]
     Active Substance: TENOFOVIR DISOPROXIL FUMARATE
     Dosage: 245.000MG QD
     Route: 048
     Dates: start: 20240109
  62. VIREAD [Concomitant]
     Active Substance: TENOFOVIR DISOPROXIL FUMARATE
     Indication: Product used for unknown indication
     Dosage: 245.000MG QD
     Route: 065
     Dates: start: 20240109
  63. LEVOCETIRIZINE DIHYDROCHLORIDE [Concomitant]
     Active Substance: LEVOCETIRIZINE DIHYDROCHLORIDE
     Dosage: 5.000MG QD
     Route: 048
     Dates: start: 20240109, end: 20240109
  64. LEVOCETIRIZINE DIHYDROCHLORIDE [Concomitant]
     Active Substance: LEVOCETIRIZINE DIHYDROCHLORIDE
     Dosage: 5.000MG QD
     Route: 048
     Dates: start: 20240116, end: 20240116
  65. LEVOCETIRIZINE DIHYDROCHLORIDE [Concomitant]
     Active Substance: LEVOCETIRIZINE DIHYDROCHLORIDE
     Dosage: 5.000MG QD
     Route: 048
     Dates: start: 20240130, end: 20240130
  66. LEVOCETIRIZINE DIHYDROCHLORIDE [Concomitant]
     Active Substance: LEVOCETIRIZINE DIHYDROCHLORIDE
     Dosage: 5.000MG QD
     Route: 048
     Dates: start: 20240206, end: 20240206
  67. LEVOCETIRIZINE DIHYDROCHLORIDE [Concomitant]
     Active Substance: LEVOCETIRIZINE DIHYDROCHLORIDE
     Indication: Product used for unknown indication
     Dosage: 5.000MG QD
     Route: 065
     Dates: start: 20240206, end: 20240206
  68. LEVOCETIRIZINE DIHYDROCHLORIDE [Concomitant]
     Active Substance: LEVOCETIRIZINE DIHYDROCHLORIDE
     Dosage: 5.000MG QD
     Route: 065
     Dates: start: 20240109, end: 20240109
  69. LEVOCETIRIZINE DIHYDROCHLORIDE [Concomitant]
     Active Substance: LEVOCETIRIZINE DIHYDROCHLORIDE
     Dosage: 5.000MG QD
     Route: 065
     Dates: start: 20240116, end: 20240116
  70. LEVOCETIRIZINE DIHYDROCHLORIDE [Concomitant]
     Active Substance: LEVOCETIRIZINE DIHYDROCHLORIDE
     Dosage: 5.000MG QD
     Route: 065
     Dates: start: 20240130, end: 20240130
  71. LEVOCETIRIZINE DIHYDROCHLORIDE [Concomitant]
     Active Substance: LEVOCETIRIZINE DIHYDROCHLORIDE
     Route: 065
     Dates: start: 20240123, end: 20240123

REACTIONS (2)
  - Cytokine release syndrome [Recovered/Resolved]
  - Febrile neutropenia [Recovered/Resolved]

NARRATIVE: CASE EVENT DATE: 20240207
